FAERS Safety Report 21985965 (Version 1)
Quarter: 2023Q1

REPORT INFORMATION
  Report Type: Spontaneous
  Country: US (occurrence: None)
  Receive Date: 20230210
  Receipt Date: 20230210
  Transmission Date: 20230417
  Serious: No
  Sender: FDA-Public Use
  Company Number: None

PATIENT
  Age: 74 Year
  Sex: Female
  Weight: 80.29 kg

DRUGS (7)
  1. CAPECITABINE [Suspect]
     Active Substance: CAPECITABINE
     Indication: Breast cancer female
     Dosage: FREQUENCY : TWICE A DAY;?
     Route: 048
  2. BENZONATATE [Concomitant]
     Active Substance: BENZONATATE
  3. CALCIUM CARBONATE [Concomitant]
     Active Substance: CALCIUM CARBONATE
  4. FLUTICASONE [Concomitant]
     Active Substance: FLUTICASONE
  5. GUAIFENESIN AND CODEINE PHOSPHATE [Concomitant]
     Active Substance: CODEINE PHOSPHATE\GUAIFENESIN
  6. METHYLPREDNISOLONE [Concomitant]
     Active Substance: METHYLPREDNISOLONE
  7. MENAQUINONE 6 [Concomitant]
     Active Substance: MENAQUINONE 6

REACTIONS (1)
  - Disease progression [None]
